FAERS Safety Report 22879231 (Version 7)
Quarter: 2023Q4

REPORT INFORMATION
  Report Type: Report from Study
  Country: RU (occurrence: RU)
  Receive Date: 20230829
  Receipt Date: 20231013
  Transmission Date: 20240109
  Serious: Yes (Other)
  Sender: FDA-Public Use
  Company Number: RU-002147023-NVSC2023RU186166

PATIENT
  Age: 3 Month
  Sex: Male
  Weight: 7.3 kg

DRUGS (6)
  1. ZOLGENSMA [Suspect]
     Active Substance: ONASEMNOGENE ABEPARVOVEC-XIOI
     Indication: Spinal muscular atrophy
     Dosage: 41.3 ML, ONCE/SINGLE
     Route: 042
     Dates: start: 20230801, end: 20230801
  2. PREDNISOLONE [Concomitant]
     Active Substance: PREDNISOLONE
     Indication: Product used for unknown indication
     Dosage: 4.375 MG, QD (3/4 TABLET + 1/8 TABLET)
     Route: 065
     Dates: start: 20230731
  3. ESOMEPRAZOLE [Concomitant]
     Active Substance: ESOMEPRAZOLE
     Indication: Product used for unknown indication
     Dosage: 2.5 MG, QD (1/4 SACHET) (1 TIME PER DAY, AT NIGHT , DURING PREDNISOLONE INTAKE)(10 MG PELLETS FOR TH
     Route: 048
     Dates: start: 20230731
  4. ALUMINUM PHOSPHATE [Concomitant]
     Active Substance: ALUMINUM PHOSPHATE
     Indication: Product used for unknown indication
     Dosage: 1/4 SACHET TID (3 TIME S A DAY AFTER MEALS, FOR THE PERIOD OF TAKING PREDNISOLONE) (GEL FOR ORAL ADM
     Route: 048
     Dates: start: 20230731
  5. DOMPERIDONE [Concomitant]
     Active Substance: DOMPERIDONE
     Indication: Product used for unknown indication
     Dosage: 1 MG (1 ML) TID (3 TIME S A DAY)
     Route: 048
     Dates: start: 20230801, end: 20230807
  6. CHOLECALCIFEROL [Concomitant]
     Active Substance: CHOLECALCIFEROL
     Indication: Product used for unknown indication
     Dosage: 1500 IU IN THE MORNING CONTINUOUSLY
     Route: 048
     Dates: start: 20230730

REACTIONS (10)
  - Blood test abnormal [Not Recovered/Not Resolved]
  - Decreased appetite [Recovered/Resolved]
  - Lethargy [Recovered/Resolved]
  - Pyrexia [Recovered/Resolved]
  - Vomiting [Recovered/Resolved]
  - Haemoglobin increased [Unknown]
  - Platelet count increased [Unknown]
  - Troponin I increased [Unknown]
  - Blood urea decreased [Unknown]
  - Activated partial thromboplastin time prolonged [Unknown]

NARRATIVE: CASE EVENT DATE: 20230801
